FAERS Safety Report 8958312 (Version 1)
Quarter: 2012Q4

REPORT INFORMATION
  Report Type: 
  Country: US (occurrence: US)
  Receive Date: 20121210
  Receipt Date: 20121210
  Transmission Date: 20130627
  Serious: Yes (Other)
  Sender: FDA-Public Use
  Company Number: US-FRI-1000040842

PATIENT
  Sex: Male
  Weight: 50.3 kg

DRUGS (1)
  1. DALIRESP [Suspect]
     Indication: CHRONIC OBSTRUCTIVE PULMONARY DISEASE
     Dosage: 500 mcg
     Route: 048
     Dates: start: 20120731, end: 20120803

REACTIONS (9)
  - Trance [Recovered/Resolved]
  - Tremor [Recovered/Resolved]
  - Blood pressure increased [Recovered/Resolved]
  - Peripheral coldness [Recovered/Resolved]
  - Suicidal ideation [Recovered/Resolved]
  - Anxiety [Recovered/Resolved]
  - Abnormal behaviour [Recovered/Resolved]
  - Insomnia [Recovered/Resolved]
  - Mood swings [Recovered/Resolved]
